FAERS Safety Report 13174502 (Version 2)
Quarter: 2017Q1

REPORT INFORMATION
  Report Type: Spontaneous
  Country: US (occurrence: US)
  Receive Date: 20170201
  Receipt Date: 20170207
  Transmission Date: 20170428
  Serious: Yes (Hospitalization, Other)
  Sender: FDA-Public Use
  Company Number: US-ALEXION PHARMACEUTICALS INC.-A201700793

PATIENT
  Sex: Male

DRUGS (2)
  1. SOLIRIS [Suspect]
     Active Substance: ECULIZUMAB
     Indication: PAROXYSMAL NOCTURNAL HAEMOGLOBINURIA
     Dosage: 1200 MG, Q2W
     Route: 042
     Dates: end: 20170120
  2. SOLIRIS [Suspect]
     Active Substance: ECULIZUMAB
     Dosage: 900 MG, EXTRA DOSE
     Route: 042
     Dates: start: 20170128

REACTIONS (9)
  - Back injury [Not Recovered/Not Resolved]
  - Incorrect dose administered [Unknown]
  - Viral infection [Recovered/Resolved]
  - Haemolysis [Unknown]
  - Abdominal pain [Unknown]
  - Haemoglobin decreased [Recovering/Resolving]
  - Haemolysis [Recovered/Resolved]
  - Back pain [Unknown]
  - Pneumonia [Not Recovered/Not Resolved]

NARRATIVE: CASE EVENT DATE: 20161107
